FAERS Safety Report 8739487 (Version 3)
Quarter: 2012Q4

REPORT INFORMATION
  Report Type: 
  Country: US (occurrence: US)
  Receive Date: 20120823
  Receipt Date: 20120924
  Transmission Date: 20130627
  Serious: Yes (Other)
  Sender: FDA-Public Use
  Company Number: US-ALEXION PHARMACEUTICALS INC.-A201201550

PATIENT
  Sex: Male
  Weight: 73.02 kg

DRUGS (8)
  1. SOLIRIS 300MG [Suspect]
     Indication: HAEMOLYTIC URAEMIC SYNDROME
     Dosage: 1200 mg, q2w
     Route: 042
     Dates: start: 201205
  2. LANTUS [Concomitant]
     Dosage: 25 IU, bid
  3. METOPROLOL [Concomitant]
     Dosage: 50 mg, bid
  4. GLIPIZIDE [Concomitant]
     Dosage: 15 mg, qd
     Route: 048
  5. METFORMIN [Concomitant]
     Dosage: 500 mg, bid
  6. MAGNESIUM SULFATE [Concomitant]
     Dosage: UNK
     Route: 042
  7. ENALAPRIL [Concomitant]
     Dosage: 10 mg, bid
  8. PREVACID [Concomitant]
     Dosage: 20 mg, bid

REACTIONS (2)
  - Retinal detachment [Recovered/Resolved]
  - Cataract [Not Recovered/Not Resolved]
